FAERS Safety Report 4519900-7 (Version None)
Quarter: 2004Q4

REPORT INFORMATION
  Report Type: 
  Country: None (occurrence: None)
  Receive Date: 20041207
  Receipt Date: 20041125
  Transmission Date: 20050328
  Serious: Yes (Hospitalization)
  Sender: FDA-Public Use
  Company Number: IT-ABBOTT-04P-083-0281699-00

PATIENT
  Sex: Male

DRUGS (6)
  1. DEPAKIN TABLETS [Suspect]
     Indication: EPILEPSY
     Route: 048
     Dates: start: 20041016, end: 20041020
  2. DEPAKIN SOLUTION [Suspect]
     Indication: EPILEPSY
     Route: 042
     Dates: start: 20041011, end: 20041016
  3. ACETYLSALICYLIC ACID [Concomitant]
     Indication: DRUG USE FOR UNKNOWN INDICATION
     Route: 048
  4. AMLODIPINE BESYLATE [Concomitant]
     Indication: DRUG USE FOR UNKNOWN INDICATION
     Route: 048
  5. UNASYN [Concomitant]
     Indication: DRUG USE FOR UNKNOWN INDICATION
     Route: 030
  6. LISINOPRIL [Concomitant]
     Indication: DRUG USE FOR UNKNOWN INDICATION
     Route: 048

REACTIONS (5)
  - CONFUSIONAL STATE [None]
  - HYPERAMMONAEMIA [None]
  - HYPERKINESIA [None]
  - LABORATORY TEST ABNORMAL [None]
  - VOMITING [None]
